FAERS Safety Report 9704113 (Version 1)
Quarter: 2013Q4

REPORT INFORMATION
  Report Type: Spontaneous
  Country: US (occurrence: US)
  Receive Date: 20131122
  Receipt Date: 20131122
  Transmission Date: 20140711
  Serious: No
  Sender: FDA-Public Use
  Company Number: US-GLAXOSMITHKLINE-A1004891A

PATIENT
  Age: 67 Year
  Sex: Female

DRUGS (12)
  1. WELLBUTRIN SR [Suspect]
     Indication: FIBROMYALGIA
     Dosage: 150MG TWICE PER DAY
     Route: 048
  2. MELATONIN [Concomitant]
  3. SYNTHROID [Concomitant]
  4. CLONAZEPAM [Concomitant]
  5. DITROPAN [Concomitant]
  6. OXYCODONE [Concomitant]
  7. TYLENOL [Concomitant]
  8. MUSCLE RELAXANT [Concomitant]
  9. PERCOCET [Concomitant]
  10. TIZANIDINE [Concomitant]
  11. IMITREX [Concomitant]
  12. ANTIHISTAMINES [Concomitant]

REACTIONS (1)
  - Insomnia [Not Recovered/Not Resolved]
